FAERS Safety Report 10272013 (Version 3)
Quarter: 2014Q3

REPORT INFORMATION
  Report Type: Spontaneous
  Country: JP (occurrence: JP)
  Receive Date: 20140702
  Receipt Date: 20140730
  Transmission Date: 20150326
  Serious: Yes (Other)
  Sender: FDA-Public Use
  Company Number: PHHY2014JP076522

PATIENT
  Age: 63 Year
  Sex: Female

DRUGS (2)
  1. CHEMOTHERAPEUTICS [Concomitant]
     Active Substance: UNSPECIFIED INGREDIENT
     Indication: METASTASES TO BONE
     Dosage: UNK
  2. ZOMETA [Suspect]
     Active Substance: ZOLEDRONIC ACID
     Indication: METASTASES TO BONE
     Route: 041

REACTIONS (3)
  - Femur fracture [Unknown]
  - Fall [Unknown]
  - Bone pain [Unknown]

NARRATIVE: CASE EVENT DATE: 201306
